FAERS Safety Report 11595535 (Version 4)
Quarter: 2016Q3

REPORT INFORMATION
  Report Type: Report from Study
  Country: GB (occurrence: GB)
  Receive Date: 20151006
  Receipt Date: 20160714
  Transmission Date: 20161109
  Serious: Yes (Hospitalization, Other)
  Sender: FDA-Public Use
  Company Number: GB-AMGEN-GBRSL2015103229

PATIENT
  Age: 57 Year
  Sex: Female

DRUGS (1)
  1. ARANESP [Suspect]
     Active Substance: DARBEPOETIN ALFA
     Indication: PRODUCT USED FOR UNKNOWN INDICATION
     Dosage: 30 MUG, UNK
     Route: 065

REACTIONS (1)
  - Hospitalisation [Not Recovered/Not Resolved]

NARRATIVE: CASE EVENT DATE: 2015
